FAERS Safety Report 8044987-7 (Version None)
Quarter: 2012Q1

REPORT INFORMATION
  Report Type: 
  Country: None (occurrence: None)
  Receive Date: 20120111
  Receipt Date: 20120111
  Transmission Date: 20120608
  Serious: No
  Sender: FDA-Public Use
  Company Number: None

PATIENT
  Sex: Male
  Weight: 74.8435 kg

DRUGS (1)
  1. FLUTAMIDE [Suspect]
     Indication: PROSTATE CANCER
     Dosage: 2 X 3 TIMES DAILY
     Dates: start: 20111201

REACTIONS (6)
  - DYSPNOEA [None]
  - BONE PAIN [None]
  - FALL [None]
  - MYALGIA [None]
  - ARTHRALGIA [None]
  - ASTHENIA [None]
